FAERS Safety Report 7299215-7 (Version None)
Quarter: 2011Q1

REPORT INFORMATION
  Report Type: 
  Country: None (occurrence: None)
  Receive Date: 20110217
  Receipt Date: 20110208
  Transmission Date: 20110831
  Serious: Yes (Other)
  Sender: FDA-Public Use
  Company Number: GXBR2011US00685

PATIENT
  Sex: Male
  Weight: 126.98 kg

DRUGS (2)
  1. PROAMATINE [Concomitant]
     Dosage: 5 MG, TID
  2. ATENOLOL [Suspect]
     Indication: BLOOD PRESSURE

REACTIONS (8)
  - ANKLE FRACTURE [None]
  - LOSS OF CONSCIOUSNESS [None]
  - PATELLA FRACTURE [None]
  - KNEE OPERATION [None]
  - PAIN IN EXTREMITY [None]
  - JOINT SURGERY [None]
  - FALL [None]
  - PRESYNCOPE [None]
